FAERS Safety Report 5825502-2 (Version None)
Quarter: 2008Q3

REPORT INFORMATION
  Report Type: 
  Country: None (occurrence: None)
  Receive Date: 20080723
  Receipt Date: 20080715
  Transmission Date: 20090109
  Serious: Yes (Hospitalization, Other)
  Sender: FDA-Public Use
  Company Number: 163-21880-08060605

PATIENT
  Age: 64 Year
  Sex: Female
  Weight: 78.0187 kg

DRUGS (8)
  1. REVLIMID [Suspect]
     Indication: MULTIPLE MYELOMA
     Dosage: 10 MG, DAILY X 21 DAYS, ORAL
     Route: 048
     Dates: start: 20070619, end: 20080301
  2. PREDNISONE [Concomitant]
  3. IRON [Concomitant]
  4. ASPIRIN [Concomitant]
  5. PERCOCET [Concomitant]
  6. POTASSIUM CHLORIDE [Concomitant]
  7. PEPCID [Concomitant]
  8. ATROVENT (IPRATROPIUM BROMIDE) (INHALANT) [Concomitant]

REACTIONS (9)
  - ANAEMIA [None]
  - BREAST CANCER [None]
  - DISEASE PROGRESSION [None]
  - DRUG INEFFECTIVE [None]
  - DRUG TOXICITY [None]
  - LOBAR PNEUMONIA [None]
  - LYMPHADENOPATHY [None]
  - MEMORY IMPAIRMENT [None]
  - MULTIPLE MYELOMA [None]
